FAERS Safety Report 8507302-8 (Version None)
Quarter: 2012Q3

REPORT INFORMATION
  Report Type: 
  Country: None (occurrence: None)
  Receive Date: 20120712
  Receipt Date: 20120401
  Transmission Date: 20120928
  Serious: Yes (Death, Other)
  Sender: FDA-Public Use
  Company Number: GR-ROCHE-1086120

PATIENT
  Age: 56 Year
  Sex: Male

DRUGS (5)
  1. AVASTIN [Suspect]
     Indication: NON-SMALL CELL LUNG CANCER
  2. VINORELBINE TATRATE [Suspect]
     Indication: NON-SMALL CELL LUNG CANCER
  3. TARCEVA [Suspect]
     Indication: NON-SMALL CELL LUNG CANCER
  4. DOCETAXEL [Concomitant]
  5. CISPLATIN [Concomitant]

REACTIONS (4)
  - METASTASES TO LIVER [None]
  - METASTASES TO LUNG [None]
  - DISEASE PROGRESSION [None]
  - PNEUMONIA ASPIRATION [None]
